FAERS Safety Report 9536867 (Version 1)
Quarter: 2013Q3

REPORT INFORMATION
  Report Type: Spontaneous
  Country: US (occurrence: US)
  Receive Date: 20130919
  Receipt Date: 20130919
  Transmission Date: 20140515
  Serious: Yes (Other)
  Sender: FDA-Public Use
  Company Number: US-TAKEDA-2013TJP000832

PATIENT
  Sex: 0

DRUGS (7)
  1. LANSOPRAZOLE [Suspect]
  2. GLIPIZIDE [Concomitant]
     Dosage: UNK
  3. SPIRIVA [Concomitant]
     Dosage: UNK
     Route: 050
  4. JANUVIA [Concomitant]
     Dosage: UNK
  5. SYMBICORT [Concomitant]
  6. TOPROL [Concomitant]
     Dosage: UNK
  7. VIAGRA                             /01367501/ [Concomitant]
     Dosage: UNK
     Dates: start: 2013

REACTIONS (2)
  - Barrett^s oesophagus [Unknown]
  - Dysphonia [Recovered/Resolved]
